FAERS Safety Report 5181018-0 (Version None)
Quarter: 2006Q4

REPORT INFORMATION
  Report Type: 
  Country: None (occurrence: None)
  Receive Date: 20061212
  Receipt Date: 20061130
  Transmission Date: 20070319
  Serious: Yes (Hospitalization)
  Sender: FDA-Public Use
  Company Number: HQWYE225309MAR06

PATIENT
  Age: 35 Year
  Sex: Male

DRUGS (2)
  1. PANTOPRAZOLE SODIUM [Suspect]
     Indication: ILL-DEFINED DISORDER
     Dosage: ^ DF ^ ORAL
     Route: 048
  2. SULFASALAZINE [Suspect]
     Indication: CROHN'S DISEASE
     Dosage: 1 G 2X PER 1 DAY ORAL
     Route: 048
     Dates: start: 20050809, end: 20060222

REACTIONS (5)
  - BILE DUCT CANCER [None]
  - CHOLECYSTITIS [None]
  - HEPATITIS [None]
  - INFERIOR VENA CAVAL OCCLUSION [None]
  - JAUNDICE [None]
